FAERS Safety Report 17930166 (Version 1)
Quarter: 2020Q2

REPORT INFORMATION
  Report Type: Spontaneous
  Country: ES (occurrence: ES)
  Receive Date: 20200623
  Receipt Date: 20200623
  Transmission Date: 20200714
  Serious: Yes (Other)
  Sender: FDA-Public Use
  Company Number: NVSC2020ES173555

PATIENT
  Age: 29 Year
  Sex: Female

DRUGS (3)
  1. NELARABINE [Suspect]
     Active Substance: NELARABINE
     Indication: ACUTE LYMPHOCYTIC LEUKAEMIA
     Dosage: 1500 MG/M2 ON DAYS 1,3 AND 5 EVERY 21 DAYS
     Route: 065
  2. CITARABIN [Concomitant]
     Active Substance: CYTARABINE
     Indication: ALLOGENIC STEM CELL TRANSPLANTATION
     Dosage: 2 G/M2 ON DAYS 1-5
     Route: 065
  3. CLOFARABINE. [Concomitant]
     Active Substance: CLOFARABINE
     Indication: ALLOGENIC STEM CELL TRANSPLANTATION
     Dosage: 40 MG/M2 ON DAYS 1-5
     Route: 065

REACTIONS (4)
  - Autonomic nervous system imbalance [Unknown]
  - Toxic neuropathy [Unknown]
  - Paraplegia [Unknown]
  - Dysaesthesia [Unknown]
